FAERS Safety Report 23973298 (Version 1)
Quarter: 2024Q2

REPORT INFORMATION
  Report Type: Spontaneous
  Country: US (occurrence: US)
  Receive Date: 20240613
  Receipt Date: 20240613
  Transmission Date: 20240716
  Serious: Yes (Death, Hospitalization, Other)
  Sender: FDA-Public Use
  Company Number: US-SANDOZ-SDZ2024US057167

PATIENT
  Sex: Female

DRUGS (3)
  1. AZITHROMYCIN [Suspect]
     Active Substance: AZITHROMYCIN
     Indication: Lung disorder
     Dosage: UNK
     Route: 065
  2. LAMPRENE [Suspect]
     Active Substance: CLOFAZIMINE
     Indication: Cough
     Dosage: UNK
     Route: 065
  3. MOXIFLOXACIN [Suspect]
     Active Substance: MOXIFLOXACIN
     Indication: Lung disorder
     Route: 065

REACTIONS (6)
  - Acute respiratory failure [Fatal]
  - Bronchiectasis [Fatal]
  - Lung disorder [Fatal]
  - Asthenia [Fatal]
  - Weight decreased [Unknown]
  - Vomiting [Unknown]
